FAERS Safety Report 7658148-4 (Version None)
Quarter: 2011Q3

REPORT INFORMATION
  Report Type: 
  Country: None (occurrence: None)
  Receive Date: 20110805
  Receipt Date: 20110727
  Transmission Date: 20111222
  Serious: Yes (Other)
  Sender: FDA-Public Use
  Company Number: FR-JNJFOC-20110800257

PATIENT
  Sex: Male

DRUGS (3)
  1. TERCIAN [Concomitant]
     Route: 065
  2. RISPERDAL CONSTA [Suspect]
     Indication: PRODUCT USED FOR UNKNOWN INDICATION
     Dosage: INITIATED ABOUT 2.5 YEARS
     Route: 030
  3. OXAZEPAM [Concomitant]
     Route: 065

REACTIONS (3)
  - TRANSAMINASES INCREASED [None]
  - WEIGHT INCREASED [None]
  - HEPATIC STEATOSIS [None]
